FAERS Safety Report 5139250-8 (Version None)
Quarter: 2006Q4

REPORT INFORMATION
  Report Type: 
  Country: None (occurrence: None)
  Receive Date: 20061030
  Receipt Date: 20061017
  Transmission Date: 20070319
  Serious: Yes (Other)
  Sender: FDA-Public Use
  Company Number: IE-JNJFOC-20061001912

PATIENT
  Age: 1 Month
  Sex: Female

DRUGS (3)
  1. TRAMADOL HCL [Suspect]
     Indication: DRUG EXPOSURE VIA BREAST MILK
     Dosage: OF MOTHER
     Route: 063
     Dates: start: 20060717, end: 20060718
  2. PARALIEF [Concomitant]
     Route: 063
  3. DIFENE [Concomitant]
     Route: 063

REACTIONS (4)
  - ACCOMMODATION DISORDER [None]
  - HYPOKINESIA [None]
  - HYPOTONIA [None]
  - SOMNOLENCE [None]
